FAERS Safety Report 10025938 (Version 1)
Quarter: 2014Q1

REPORT INFORMATION
  Report Type: Spontaneous
  Country: GB (occurrence: None)
  Receive Date: 20140314
  Receipt Date: 20140314
  Transmission Date: 20141002
  Serious: Yes (Other)
  Sender: FDA-Public Use
  Company Number: AUR-APL-2014-02632

PATIENT
  Age: 72 Year
  Sex: Male
  Weight: 57.18 kg

DRUGS (5)
  1. PERINDOPRIL (PERINDOPRIL) [Suspect]
     Indication: PRODUCT USED FOR UNKNOWN INDICATION
     Dosage: UNKNOWN
     Dates: start: 20131022
  2. ASPIRIN (ACETYLSALICYLIC ACID) [Concomitant]
  3. BISOPROLOL (BISOPROLOL) [Concomitant]
  4. DUOTRAV (DUOTRAV) [Concomitant]
  5. LANSOPRAZOLE (LANSOPRAZOLE) [Concomitant]

REACTIONS (1)
  - Malaise [None]
